FAERS Safety Report 11597805 (Version 2)
Quarter: 2015Q4

REPORT INFORMATION
  Report Type: Report from Study
  Country: PL (occurrence: PL)
  Receive Date: 20151006
  Receipt Date: 20151019
  Transmission Date: 20160304
  Serious: Yes (Hospitalization, Other)
  Sender: FDA-Public Use
  Company Number: PL-TEVA-507248USA

PATIENT
  Sex: Female

DRUGS (56)
  1. MILURIT [Concomitant]
     Active Substance: ALLOPURINOL
     Indication: PROPHYLAXIS
     Route: 065
     Dates: start: 20140811, end: 20140816
  2. MILURIT [Concomitant]
     Active Substance: ALLOPURINOL
     Route: 048
     Dates: start: 20140828, end: 20140920
  3. PARACETAMOL [Concomitant]
     Active Substance: ACETAMINOPHEN
     Route: 048
     Dates: start: 20141117, end: 20141117
  4. AMERTIL [Concomitant]
     Route: 048
     Dates: start: 20140902, end: 20140902
  5. AMERTIL [Concomitant]
     Route: 048
     Dates: start: 20141117, end: 20141117
  6. CLEMASTIN [Concomitant]
     Active Substance: CLEMASTINE
     Indication: PROPHYLAXIS
     Route: 042
     Dates: start: 20140818, end: 20140818
  7. LUCENTIS [Concomitant]
     Active Substance: RANIBIZUMAB
     Indication: MACULAR DEGENERATION
     Route: 031
     Dates: start: 201407
  8. BISOCARD [Concomitant]
     Active Substance: BISOPROLOL
     Indication: HYPERTENSION
     Route: 048
     Dates: start: 2012
  9. DEXAVEN [Concomitant]
     Active Substance: DEXAMETHASONE
     Route: 042
     Dates: start: 20141020, end: 20141020
  10. AMERTIL [Concomitant]
     Route: 048
     Dates: start: 20140922, end: 20140922
  11. CLEMASTIN [Concomitant]
     Active Substance: CLEMASTINE
     Route: 042
     Dates: start: 20141117, end: 20141117
  12. OBINUTUZUMAB [Suspect]
     Active Substance: OBINUTUZUMAB
     Indication: CHRONIC LYMPHOCYTIC LEUKAEMIA
     Route: 042
     Dates: start: 20140818, end: 20140819
  13. DEXAVEN [Concomitant]
     Active Substance: DEXAMETHASONE
     Indication: PROPHYLAXIS
     Route: 042
     Dates: start: 20140817, end: 20140818
  14. DEXAVEN [Concomitant]
     Active Substance: DEXAMETHASONE
     Route: 042
     Dates: start: 20140902, end: 20140902
  15. DEXAVEN [Concomitant]
     Active Substance: DEXAMETHASONE
     Route: 042
     Dates: start: 20141117, end: 20141117
  16. PARACETAMOL [Concomitant]
     Active Substance: ACETAMINOPHEN
     Route: 048
     Dates: start: 20140827, end: 20140827
  17. PARACETAMOL [Concomitant]
     Active Substance: ACETAMINOPHEN
     Route: 048
     Dates: start: 20140909, end: 20140909
  18. AMERTIL [Concomitant]
     Route: 048
     Dates: start: 20140827, end: 20140827
  19. AMERTIL [Concomitant]
     Route: 048
     Dates: start: 20140909, end: 20140909
  20. CLEMASTIN [Concomitant]
     Active Substance: CLEMASTINE
     Route: 042
     Dates: start: 20140922, end: 20140922
  21. BENDAMUSTINE HYDROCHLORIDE [Suspect]
     Active Substance: BENDAMUSTINE HYDROCHLORIDE
     Indication: CHRONIC LYMPHOCYTIC LEUKAEMIA
     Route: 042
     Dates: start: 20140818, end: 20140819
  22. BENDAMUSTINE HYDROCHLORIDE [Suspect]
     Active Substance: BENDAMUSTINE HYDROCHLORIDE
     Route: 042
     Dates: start: 20140827
  23. HYDROCHLOROTHIAZIDE. [Concomitant]
     Active Substance: HYDROCHLOROTHIAZIDE
     Indication: OSTEOPOROSIS
     Route: 048
     Dates: start: 2004
  24. DEXAVEN [Concomitant]
     Active Substance: DEXAMETHASONE
     Route: 042
     Dates: start: 20140909, end: 20140909
  25. DEXAVEN [Concomitant]
     Active Substance: DEXAMETHASONE
     Route: 042
     Dates: start: 20140922, end: 20140922
  26. DEXAVEN [Concomitant]
     Active Substance: DEXAMETHASONE
     Route: 042
     Dates: start: 20141215, end: 20141215
  27. DEXAVEN [Concomitant]
     Active Substance: DEXAMETHASONE
     Route: 042
     Dates: start: 20150112, end: 20150112
  28. PARACETAMOL [Concomitant]
     Active Substance: ACETAMINOPHEN
     Indication: PROPHYLAXIS
     Route: 048
     Dates: start: 20140818, end: 20140818
  29. AMERTIL [Concomitant]
     Route: 048
     Dates: start: 20141020, end: 20141020
  30. MILURIT [Concomitant]
     Active Substance: ALLOPURINOL
     Route: 048
     Dates: start: 20141217, end: 20150111
  31. DEXAVEN [Concomitant]
     Active Substance: DEXAMETHASONE
     Route: 042
     Dates: start: 20140827, end: 20140827
  32. PARACETAMOL [Concomitant]
     Active Substance: ACETAMINOPHEN
     Route: 048
     Dates: start: 20140902, end: 20140902
  33. PARACETAMOL [Concomitant]
     Active Substance: ACETAMINOPHEN
     Route: 048
     Dates: start: 20141215, end: 20141215
  34. AMERTIL [Concomitant]
     Indication: PROPHYLAXIS
     Route: 048
     Dates: start: 20140818, end: 20140818
  35. AMERTIL [Concomitant]
     Route: 048
     Dates: start: 20150112, end: 20150112
  36. CLEMASTIN [Concomitant]
     Active Substance: CLEMASTINE
     Route: 042
     Dates: start: 20140902, end: 20140902
  37. OBINUTUZUMAB [Suspect]
     Active Substance: OBINUTUZUMAB
     Route: 042
     Dates: start: 20140827
  38. ASPARGIN                           /00466901/ [Concomitant]
     Active Substance: ASPARTIC ACID
     Indication: OSTEOPOROSIS
     Route: 048
     Dates: start: 2004
  39. MILURIT [Concomitant]
     Active Substance: ALLOPURINOL
     Route: 048
     Dates: start: 20140924, end: 20141019
  40. PARACETAMOL [Concomitant]
     Active Substance: ACETAMINOPHEN
     Route: 048
     Dates: start: 20140922, end: 20140922
  41. PARACETAMOL [Concomitant]
     Active Substance: ACETAMINOPHEN
     Route: 048
     Dates: start: 20150112, end: 20150112
  42. AMERTIL [Concomitant]
     Route: 048
     Dates: start: 20141215, end: 20141215
  43. CLEMASTIN [Concomitant]
     Active Substance: CLEMASTINE
     Route: 042
     Dates: start: 20141020, end: 20141020
  44. CLEMASTIN [Concomitant]
     Active Substance: CLEMASTINE
     Route: 042
     Dates: start: 20141215, end: 20141215
  45. CALPEROS                           /00944201/ [Concomitant]
     Indication: OSTEOPOROSIS
     Route: 048
     Dates: start: 2004, end: 20140818
  46. CALPEROS                           /00944201/ [Concomitant]
     Route: 048
     Dates: start: 20150326
  47. MILURIT [Concomitant]
     Active Substance: ALLOPURINOL
     Route: 048
     Dates: start: 20140817, end: 20140817
  48. MILURIT [Concomitant]
     Active Substance: ALLOPURINOL
     Route: 048
     Dates: start: 20141119, end: 20141214
  49. PARACETAMOL [Concomitant]
     Active Substance: ACETAMINOPHEN
     Route: 048
     Dates: start: 20141020, end: 20141020
  50. AMERTIL [Concomitant]
     Route: 048
     Dates: start: 20141020, end: 20141020
  51. CLEMASTIN [Concomitant]
     Active Substance: CLEMASTINE
     Route: 042
     Dates: start: 20150112, end: 20150112
  52. ATORVASTATIN [Suspect]
     Active Substance: ATORVASTATIN
     Indication: HYPERCHOLESTEROLAEMIA
     Route: 065
     Dates: start: 2010, end: 20140818
  53. CALPEROS                           /00944201/ [Concomitant]
     Route: 048
     Dates: start: 20141118, end: 20141216
  54. MILURIT [Concomitant]
     Active Substance: ALLOPURINOL
     Route: 048
     Dates: start: 20141022, end: 20141116
  55. CLEMASTIN [Concomitant]
     Active Substance: CLEMASTINE
     Route: 042
     Dates: start: 20140827, end: 20140827
  56. CLEMASTIN [Concomitant]
     Active Substance: CLEMASTINE
     Route: 042
     Dates: start: 20140909, end: 20140909

REACTIONS (2)
  - Hepatitis [Recovered/Resolved]
  - Thrombocytopenia [Recovered/Resolved]

NARRATIVE: CASE EVENT DATE: 20140819
